FAERS Safety Report 13617640 (Version 1)
Quarter: 2017Q2

REPORT INFORMATION
  Report Type: Spontaneous
  Country: US (occurrence: US)
  Receive Date: 20170606
  Receipt Date: 20170606
  Transmission Date: 20170830
  Serious: Yes (Other)
  Sender: FDA-Public Use
  Company Number: US-SA-2016SA056275

PATIENT
  Age: 59 Year
  Sex: Male
  Weight: 81.6 kg

DRUGS (5)
  1. LANTUS [Suspect]
     Active Substance: INSULIN GLARGINE
     Indication: DIABETES MELLITUS
     Dosage: DOSE:16 UNIT(S)
     Route: 065
     Dates: start: 2010, end: 2013
  2. LEVEMIR [Concomitant]
     Active Substance: INSULIN DETEMIR
  3. APIDRA [Concomitant]
     Active Substance: INSULIN GLULISINE
  4. BYETTA [Concomitant]
     Active Substance: EXENATIDE
  5. LEVOTHYROXINE. [Concomitant]
     Active Substance: LEVOTHYROXINE

REACTIONS (2)
  - Hypoglycaemia [Recovered/Resolved]
  - Injection site urticaria [Recovered/Resolved]
